FAERS Safety Report 6784845 (Version 2)
Quarter: 2012Q4

REPORT INFORMATION
  Report Type: 
  Country: CA (occurrence: CA)
  Receive Date: 20081010
  Receipt Date: 20121011
  Transmission Date: 20130627
  Serious: Yes (Other)
  Sender: FDA-Public Use
  Company Number: CA-PFIZER INC-2008082010

PATIENT
  Age: 44 Year
  Sex: Female
  Weight: 106 kg

DRUGS (1)
  1. SUNITINIB MALATE [Suspect]
     Indication: ADENOCARCINOMA OF THE CERVIX
     Dosage: 50 mg, 1x/day
     Route: 048
     Dates: start: 20070424, end: 20070712

REACTIONS (1)
  - Gastrointestinal fistula [Recovered/Resolved]
